FAERS Safety Report 5804506-X (Version None)
Quarter: 2008Q3

REPORT INFORMATION
  Report Type: 
  Country: None (occurrence: None)
  Receive Date: 20080707
  Receipt Date: 20080707
  Transmission Date: 20090109
  Serious: Yes (Other)
  Sender: FDA-Public Use
  Company Number: None

PATIENT
  Sex: Female
  Weight: 77.1115 kg

DRUGS (2)
  1. FORTEO [Suspect]
     Indication: OSTEOPOROSIS
     Dosage: 20 MCG ONCE A DAY SQ
     Route: 058
     Dates: start: 20071120, end: 20071206
  2. FORTEO [Suspect]
     Indication: OSTEOPOROSIS
     Dosage: 20MCG ONCE A DAY SQ
     Route: 058
     Dates: start: 20080108, end: 20080121

REACTIONS (10)
  - ACTIVITIES OF DAILY LIVING IMPAIRED [None]
  - ANXIETY [None]
  - BLOOD PRESSURE DECREASED [None]
  - CHEST DISCOMFORT [None]
  - CONFUSIONAL STATE [None]
  - FATIGUE [None]
  - FEELING ABNORMAL [None]
  - NAUSEA [None]
  - PANIC ATTACK [None]
  - SENSORY DISTURBANCE [None]
